FAERS Safety Report 8536486-0 (Version None)
Quarter: 2012Q3

REPORT INFORMATION
  Report Type: 
  Country: None (occurrence: None)
  Receive Date: 20120725
  Receipt Date: 20120719
  Transmission Date: 20120928
  Serious: Yes (Life-Threatening, Hospitalization)
  Sender: FDA-Public Use
  Company Number: PHHY2012CH062631

PATIENT
  Sex: Female

DRUGS (1)
  1. GILENYA [Suspect]
     Indication: MULTIPLE SCLEROSIS
     Dosage: MATERNAL DOSE: 0.5 MG DAILY
     Route: 064

REACTIONS (28)
  - LOW BIRTH WEIGHT BABY [None]
  - INFANTILE APNOEIC ATTACK [None]
  - PULMONARY HYPERTENSION [None]
  - FOETAL GROWTH RESTRICTION [None]
  - ANAEMIA NEONATAL [None]
  - HYPERBILIRUBINAEMIA NEONATAL [None]
  - THROMBOCYTOPENIA NEONATAL [None]
  - LEUKOPENIA NEONATAL [None]
  - FOETAL HAEMOGLOBIN DECREASED [None]
  - HYPERNATRAEMIA [None]
  - HYPERGLYCAEMIA [None]
  - ATRIAL SEPTAL DEFECT [None]
  - CEREBRAL HAEMORRHAGE [None]
  - RHINORRHOEA [None]
  - FOETAL EXPOSURE DURING PREGNANCY [None]
  - NEONATAL RESPIRATORY DISTRESS SYNDROME [None]
  - PREMATURE BABY [None]
  - BRADYCARDIA NEONATAL [None]
  - HYPOTENSION [None]
  - NEONATAL HYPONATRAEMIA [None]
  - PATENT DUCTUS ARTERIOSUS [None]
  - HAEMANGIOMA [None]
  - BRONCHOPULMONARY DYSPLASIA [None]
  - LEFT ATRIAL DILATATION [None]
  - VENTRICULAR SEPTAL DEFECT [None]
  - NEONATAL INFECTION [None]
  - TORTICOLLIS [None]
  - FOETAL PLACENTAL THROMBOSIS [None]
